FAERS Safety Report 7382329-0 (Version None)
Quarter: 2011Q1

REPORT INFORMATION
  Report Type: 
  Country: None (occurrence: None)
  Receive Date: 20110329
  Receipt Date: 20110222
  Transmission Date: 20110831
  Serious: Yes (Other)
  Sender: FDA-Public Use
  Company Number: US-BAYER-201034253NA

PATIENT
  Sex: Female

DRUGS (5)
  1. YAZ [Suspect]
     Dosage: UNK UNK, QD
     Route: 048
  2. YASMIN [Suspect]
     Route: 048
  3. LORA TAB [Concomitant]
  4. LEVAQUIN [Concomitant]
     Dosage: 750 MG, UNK
     Route: 048
  5. CLARITIN [Concomitant]

REACTIONS (3)
  - CHOLECYSTECTOMY [None]
  - CHOLELITHIASIS [None]
  - CHOLECYSTITIS CHRONIC [None]
